FAERS Safety Report 8306420-7 (Version None)
Quarter: 2012Q2

REPORT INFORMATION
  Report Type: 
  Country: None (occurrence: None)
  Receive Date: 20120423
  Receipt Date: 20120409
  Transmission Date: 20120825
  Serious: Yes (Death, Life-Threatening, Other)
  Sender: FDA-Public Use
  Company Number: -MYLANLABS-2009AC000299

PATIENT
  Sex: Male
  Weight: 90.72 kg

DRUGS (21)
  1. KLOR-CON [Concomitant]
  2. PREVACID [Concomitant]
  3. BICARBONATE [Concomitant]
  4. DILAUDID [Concomitant]
  5. DIGOXIN [Suspect]
     Indication: ARRHYTHMIA
     Route: 048
     Dates: start: 20010101, end: 20071019
  6. FERROUS SULFATE TAB [Concomitant]
  7. EPINEPHRINE [Concomitant]
  8. ATROPINE [Concomitant]
  9. CARVEDILOL [Concomitant]
  10. TYLENOL (CAPLET) [Concomitant]
  11. COREG [Concomitant]
  12. BENAZEPRIL HYDROCHLORIDE [Concomitant]
  13. SULFAMETHOXAZOLE [Concomitant]
  14. VICODIN [Concomitant]
  15. AMOXICILLIN [Concomitant]
  16. FUROSEMIDE [Concomitant]
  17. CIPROFLOXACIN [Concomitant]
  18. FISH OIL [Concomitant]
  19. POTASSIUM CHLORIDE [Concomitant]
  20. AMIODARONE HCL [Concomitant]
  21. LOTENSIN [Concomitant]

REACTIONS (52)
  - RESUSCITATION [None]
  - ANAEMIA [None]
  - NAUSEA [None]
  - DECREASED APPETITE [None]
  - DILATATION VENTRICULAR [None]
  - DRUG LEVEL BELOW THERAPEUTIC [None]
  - CARDIAC FAILURE CONGESTIVE [None]
  - ENDOTRACHEAL INTUBATION [None]
  - TINEA PEDIS [None]
  - ERYTHEMA [None]
  - VENTRICULAR HYPOKINESIA [None]
  - RASH [None]
  - INJURY [None]
  - ECONOMIC PROBLEM [None]
  - CONGENITAL CYSTIC KIDNEY DISEASE [None]
  - CREPITATIONS [None]
  - ABDOMINAL DISTENSION [None]
  - CARDIOVERSION [None]
  - UNRESPONSIVE TO STIMULI [None]
  - BACK PAIN [None]
  - DYSPNOEA EXERTIONAL [None]
  - ARTERIOSCLEROSIS [None]
  - MYOCARDIAL INFARCTION [None]
  - NASAL TURBINATE ABNORMALITY [None]
  - DEATH [None]
  - ILL-DEFINED DISORDER [None]
  - LEFT VENTRICULAR HYPERTROPHY [None]
  - UNEMPLOYMENT [None]
  - MALAISE [None]
  - RENAL FAILURE CHRONIC [None]
  - RENAL DISORDER [None]
  - NEPHROLITHIASIS [None]
  - HEPATIC CYST [None]
  - PHYSICAL EXAMINATION ABNORMAL [None]
  - OEDEMA [None]
  - CARDIAC ARREST [None]
  - CARDIOMYOPATHY [None]
  - GASTRITIS [None]
  - DRY SKIN [None]
  - GENERAL PHYSICAL CONDITION ABNORMAL [None]
  - RENAL CYST [None]
  - CARDIAC MURMUR [None]
  - PULSE ABSENT [None]
  - CARDIOMEGALY [None]
  - KIDNEY INFECTION [None]
  - PAIN [None]
  - WEIGHT INCREASED [None]
  - RESPIRATORY FAILURE [None]
  - FATIGUE [None]
  - HAEMATURIA [None]
  - GASTROOESOPHAGEAL REFLUX DISEASE [None]
  - PYELONEPHRITIS [None]
